FAERS Safety Report 23304929 (Version 1)
Quarter: 2023Q4

REPORT INFORMATION
  Report Type: Spontaneous
  Country: None (occurrence: FR)
  Receive Date: 20231218
  Receipt Date: 20231218
  Transmission Date: 20240109
  Serious: Yes (Hospitalization)
  Sender: FDA-Public Use
  Company Number: FR-B.Braun Medical Inc.-2149418

PATIENT
  Age: 15 Year
  Sex: Female

DRUGS (2)
  1. ACETAMINOPHEN [Suspect]
     Active Substance: ACETAMINOPHEN
     Indication: Toxicity to various agents
  2. ACETYLCYSTEINE [Suspect]
     Active Substance: ACETYLCYSTEINE

REACTIONS (3)
  - Prothrombin time ratio decreased [None]
  - Off label use [None]
  - Overdose [None]
